FAERS Safety Report 6929266-0 (Version None)
Quarter: 2010Q3

REPORT INFORMATION
  Report Type: 
  Country: None (occurrence: None)
  Receive Date: 20100811
  Receipt Date: 20100728
  Transmission Date: 20110219
  Serious: Yes (Hospitalization)
  Sender: FDA-Public Use
  Company Number: 1000015519

PATIENT
  Age: 55 Year
  Sex: Female

DRUGS (5)
  1. ESCITALOPRAM [Suspect]
     Dosage: ORAL
     Route: 048
     Dates: start: 20100707, end: 20100707
  2. METEOSPASMYL [Suspect]
     Indication: ABDOMINAL RIGIDITY
     Dosage: 4 DOSAGE FORMS (2 DOSAGE FORMS, 2 IN 1 D), ORAL
     Route: 048
     Dates: start: 20100601, end: 20100709
  3. PASSIFLORA INCARNATA [Suspect]
     Indication: NERVOUSNESS
     Dosage: 10 DOSAGE FORMS (5 DOSAGE FORMS, 2 IN 1 D), ORAL
     Route: 048
     Dates: start: 20100601, end: 20100709
  4. IBUPROFEN [Suspect]
     Dosage: ORAL
     Route: 048
     Dates: start: 20100708, end: 20100708
  5. KARAYAL [Concomitant]

REACTIONS (2)
  - CONDITION AGGRAVATED [None]
  - CYTOLYTIC HEPATITIS [None]
